FAERS Safety Report 19139263 (Version 1)
Quarter: 2021Q2

REPORT INFORMATION
  Report Type: Not Available
  Country: None (occurrence: None)
  Receive Date: 20210415
  Receipt Date: 20210415
  Transmission Date: 20210717
  Serious: No
  Sender: FDA-Public Use
  Company Number: US-AKORN-163920

PATIENT
  Age: 91 Year
  Sex: Male

DRUGS (1)
  1. PILOCARPINE HYDROCHLORIDE. [Suspect]
     Active Substance: PILOCARPINE HYDROCHLORIDE

REACTIONS (2)
  - Eye inflammation [Unknown]
  - Eye irritation [Recovered/Resolved]
